FAERS Safety Report 6233479-3 (Version None)
Quarter: 2009Q2

REPORT INFORMATION
  Report Type: 
  Country: None (occurrence: None)
  Receive Date: 20090612
  Receipt Date: 20090601
  Transmission Date: 20091009
  Serious: Yes (Life-Threatening, Hospitalization)
  Sender: FDA-Public Use
  Company Number: 236111K09USA

PATIENT
  Age: 46 Year
  Sex: Female

DRUGS (5)
  1. REBIF [Suspect]
     Indication: MULTIPLE SCLEROSIS
     Dosage: 44 MCG, 3 IN 1 WEEKS, SUBCUTANEOUS
     Route: 058
     Dates: start: 20090123, end: 20090601
  2. WELLBUTRIN [Concomitant]
  3. LEXAPRO [Concomitant]
  4. KLONOPIN [Concomitant]
  5. LYRICA [Concomitant]

REACTIONS (13)
  - ABASIA [None]
  - AGGRESSION [None]
  - ASPIRATION [None]
  - CONDITION AGGRAVATED [None]
  - CRYING [None]
  - DEPRESSED LEVEL OF CONSCIOUSNESS [None]
  - DEPRESSION [None]
  - INCOHERENT [None]
  - MOOD SWINGS [None]
  - OVERDOSE [None]
  - STUPOR [None]
  - SUICIDE ATTEMPT [None]
  - VOMITING [None]
